FAERS Safety Report 7995820-0 (Version None)
Quarter: 2011Q4

REPORT INFORMATION
  Report Type: 
  Country: None (occurrence: None)
  Receive Date: 20111220
  Receipt Date: 20111216
  Transmission Date: 20120403
  Serious: No
  Sender: FDA-Public Use
  Company Number: US-JNJFOC-20111208280

PATIENT
  Sex: Male
  Weight: 63.05 kg

DRUGS (2)
  1. DURAGESIC-100 [Suspect]
     Indication: SPINAL OPERATION
     Route: 062
     Dates: start: 20010101, end: 20090101
  2. DURAGESIC-100 [Suspect]
     Route: 062
     Dates: start: 20090101

REACTIONS (5)
  - APPLICATION SITE RASH [None]
  - HYPERHIDROSIS [None]
  - PAIN [None]
  - PRODUCT ADHESION ISSUE [None]
  - WRONG TECHNIQUE IN DRUG USAGE PROCESS [None]
